FAERS Safety Report 9519835 (Version 1)
Quarter: 2013Q1

REPORT INFORMATION
  Report Type: Spontaneous
  Country: US (occurrence: None)
  Receive Date: 20130305
  Receipt Date: 20130305
  Transmission Date: 20140127
  Serious: Yes (Hospitalization)
  Sender: FDA-Public Use
  Company Number: 163-21880-12111837

PATIENT
  Age: 77 Year
  Sex: Male
  Weight: 94.35 kg

DRUGS (8)
  1. REVLIMID [Suspect]
     Indication: MYELODYSPLASTIC SYNDROME
     Dosage: 10 MG, 1 IN 1 D, PO
     Route: 048
     Dates: start: 201209
  2. METFORMIN HCL (METFORMIN HYDROCHLORIDE) (UNKNOWN)? [Concomitant]
  3. METOPROLOL SUCCINATE (METOPROLOL SUCCINATE) (UNKNOWN)? [Concomitant]
  4. MULTIVITAMINS (MULTIVITAMINS) (CAPSULES) [Concomitant]
  5. NOVOLOG (INSULIN ASPART) (UNKNOWN) [Concomitant]
  6. SIMVASTATIN [Concomitant]
  7. VITAMIN C (ASCORBIC ACID) (TABLETS) [Concomitant]
  8. VITAMIN D (ERGOCALCIFEROL) (TABLETS) [Concomitant]

REACTIONS (2)
  - Pneumonia legionella [None]
  - Hypoacusis [None]
